FAERS Safety Report 14351800 (Version 1)
Quarter: 2018Q1

REPORT INFORMATION
  Report Type: Spontaneous
  Country: BE (occurrence: BE)
  Receive Date: 20180104
  Receipt Date: 20180104
  Transmission Date: 20180509
  Serious: Yes (Life-Threatening, Other)
  Sender: FDA-Public Use
  Company Number: PHHY2017BE197155

PATIENT
  Age: 76 Year
  Sex: Female

DRUGS (1)
  1. CEFTRIAXONE. [Suspect]
     Active Substance: CEFTRIAXONE
     Indication: LYME DISEASE
     Dosage: UNK
     Route: 065

REACTIONS (3)
  - Nephropathy [Unknown]
  - Acute kidney injury [Unknown]
  - Haemolytic anaemia [Unknown]
